FAERS Safety Report 23947913 (Version 3)
Quarter: 2024Q3

REPORT INFORMATION
  Report Type: Report from Study
  Country: ES (occurrence: ES)
  Receive Date: 20240606
  Receipt Date: 20240925
  Transmission Date: 20241017
  Serious: Yes (Death, Other)
  Sender: ABBVIE
  Company Number: ES-ABBVIE-5767992

PATIENT
  Sex: Male
  Weight: 60 kg

DRUGS (2)
  1. CARBIDOPA\LEVODOPA [Suspect]
     Active Substance: CARBIDOPA\LEVODOPA
     Indication: Parkinson^s disease
     Dosage: LAST ADMIN DATE IN 2024
     Route: 050
     Dates: start: 20190926
  2. CARBIDOPA\LEVODOPA [Suspect]
     Active Substance: CARBIDOPA\LEVODOPA
     Dosage: INCREASED CONTINUOUS DOSE TO 3.2 ML
     Route: 050
     Dates: start: 2024

REACTIONS (10)
  - Pneumonia [Fatal]
  - Choking [Unknown]
  - Musculoskeletal stiffness [Recovered/Resolved]
  - Escherichia sepsis [Recovered/Resolved]
  - Strabismus [Recovering/Resolving]
  - Salivary hypersecretion [Unknown]
  - Gait disturbance [Unknown]
  - Escherichia infection [Unknown]
  - Dyskinesia [Recovered/Resolved]
  - Pneumonia [Recovered/Resolved]

NARRATIVE: CASE EVENT DATE: 20240101
